FAERS Safety Report 16565454 (Version 2)
Quarter: 2019Q3

REPORT INFORMATION
  Report Type: Spontaneous
  Country: US (occurrence: US)
  Receive Date: 20190712
  Receipt Date: 20190722
  Transmission Date: 20191004
  Serious: No
  Sender: FDA-Public Use
  Company Number: US-GLAXOSMITHKLINE-US2019122982

PATIENT
  Age: 72 Year
  Sex: Male

DRUGS (1)
  1. ANORO ELLIPTA [Suspect]
     Active Substance: UMECLIDINIUM BROMIDE\VILANTEROL TRIFENATATE
     Indication: EMPHYSEMA
     Dosage: 1 PUFF(S), QD
     Route: 055
     Dates: start: 2019

REACTIONS (10)
  - Dizziness [Unknown]
  - Gingival pain [Unknown]
  - Loose tooth [Unknown]
  - Dry mouth [Unknown]
  - Fear [Unknown]
  - Oral pain [Not Recovered/Not Resolved]
  - Toothache [Unknown]
  - Noninfective gingivitis [Not Recovered/Not Resolved]
  - Product dose omission [Unknown]
  - Tooth extraction [Unknown]

NARRATIVE: CASE EVENT DATE: 2019
